FAERS Safety Report 19477957 (Version 1)
Quarter: 2021Q2

REPORT INFORMATION
  Report Type: Report from Study
  Country: US (occurrence: US)
  Receive Date: 20210630
  Receipt Date: 20210630
  Transmission Date: 20210717
  Serious: No
  Sender: FDA-Public Use
  Company Number: NVSC2021US145506

PATIENT
  Sex: Female

DRUGS (1)
  1. PIQRAY [Suspect]
     Active Substance: ALPELISIB
     Indication: SQUAMOUS CELL CARCINOMA OF SKIN
     Dosage: 2 DF(TABLET), QD
     Route: 048
     Dates: start: 20191221

REACTIONS (1)
  - Fatigue [Unknown]
